FAERS Safety Report 9193780 (Version 1)
Quarter: 2013Q1

REPORT INFORMATION
  Report Type: Spontaneous
  Country: FR (occurrence: FR)
  Receive Date: 20130327
  Receipt Date: 20130327
  Transmission Date: 20140127
  Serious: Yes (Other)
  Sender: FDA-Public Use
  Company Number: FR-PFIZER INC-2013092594

PATIENT
  Age: 44 Year
  Sex: Male

DRUGS (8)
  1. REVATIO [Suspect]
     Indication: PULMONARY HYPERTENSION
     Dosage: UNK
     Dates: start: 200909
  2. SUBUTEX [Concomitant]
     Dosage: UNK
     Dates: start: 2001
  3. LASILIX [Concomitant]
     Dosage: UNK
     Dates: start: 2005
  4. CARDENSIEL [Concomitant]
     Dosage: UNK
     Dates: start: 2005
  5. ACUPAN [Concomitant]
     Dosage: UNK
     Dates: start: 201104
  6. EFFEXOR [Concomitant]
     Dosage: 75 MG, UNK
     Dates: start: 2007
  7. PARACETAMOL [Concomitant]
  8. LYRICA [Concomitant]
     Dosage: UNK
     Dates: start: 201103

REACTIONS (1)
  - Polyneuropathy [Not Recovered/Not Resolved]
